FAERS Safety Report 22241236 (Version 1)
Quarter: 2023Q2

REPORT INFORMATION
  Report Type: Spontaneous
  Country: CN (occurrence: CN)
  Receive Date: 20230421
  Receipt Date: 20230421
  Transmission Date: 20230722
  Serious: Yes (Other)
  Sender: FDA-Public Use
  Company Number: CN-002147023-NVSC2023CN087262

PATIENT
  Age: 77 Year
  Sex: Female
  Weight: 51 kg

DRUGS (1)
  1. SACUBITRIL\VALSARTAN [Suspect]
     Active Substance: SACUBITRIL\VALSARTAN
     Indication: Chronic obstructive pulmonary disease
     Dosage: 25 MG, BID
     Route: 048
     Dates: start: 20230329, end: 20230330

REACTIONS (4)
  - Hypotension [Recovered/Resolved]
  - Dizziness postural [Unknown]
  - Underdose [Unknown]
  - Product use in unapproved indication [Unknown]

NARRATIVE: CASE EVENT DATE: 20230330
